FAERS Safety Report 5384329-9 (Version None)
Quarter: 2007Q3

REPORT INFORMATION
  Report Type: 
  Country: None (occurrence: None)
  Receive Date: 20070710
  Receipt Date: 20061113
  Transmission Date: 20080115
  Serious: Yes (Hospitalization)
  Sender: FDA-Public Use
  Company Number: 2006-01986

PATIENT
  Age: 65 Year
  Sex: Female
  Weight: 100.7 kg

DRUGS (13)
  1. VELCADE [Suspect]
     Indication: MULTIPLE MYELOMA
     Dosage: 1.30 MG/M2
     Dates: start: 20060725, end: 20060728
  2. ASPIRIN [Concomitant]
  3. PLAVIX [Concomitant]
  4. TOPROL-XL [Concomitant]
  5. LISINOPRIL [Concomitant]
  6. VYTORIN [Concomitant]
  7. LANTUS [Concomitant]
  8. NOVOLOG [Concomitant]
  9. ADVAIR DISKUS 100/50 [Concomitant]
  10. ALBUTEROL [Concomitant]
  11. PROTONIX [Concomitant]
  12. PREDNISOLONE [Concomitant]
  13. ARTIFICIAL TEARS [Concomitant]

REACTIONS (4)
  - ANAEMIA [None]
  - CARDIAC FAILURE CONGESTIVE [None]
  - HYPOKALAEMIA [None]
  - LOBAR PNEUMONIA [None]
